FAERS Safety Report 18807421 (Version 4)
Quarter: 2021Q2

REPORT INFORMATION
  Report Type: Report from Study
  Country: CA (occurrence: CA)
  Receive Date: 20210129
  Receipt Date: 20210525
  Transmission Date: 20210717
  Serious: Yes (Hospitalization, Other)
  Sender: FDA-Public Use
  Company Number: CA-JNJFOC-20210133793

PATIENT
  Age: 59 Year
  Sex: Female

DRUGS (3)
  1. STELARA [Suspect]
     Active Substance: USTEKINUMAB
     Dosage: WAS INJECTED AT LAST APPOINTMENT ON DECEMBER 08, 2020
     Route: 058
     Dates: start: 20191013, end: 20201218
  2. STELARA [Suspect]
     Active Substance: USTEKINUMAB
     Dosage: SUSPECT START DATE:05?MAR?2021
     Route: 058
     Dates: start: 20210201
  3. STELARA [Suspect]
     Active Substance: USTEKINUMAB
     Indication: CROHN^S DISEASE
     Dosage: WEEKS 0
     Route: 042
     Dates: start: 20201013

REACTIONS (11)
  - Off label use [Unknown]
  - Product use issue [Unknown]
  - Streptococcal urinary tract infection [Unknown]
  - Lacrimation increased [Unknown]
  - Therapeutic product effect decreased [Unknown]
  - End stage renal disease [Unknown]
  - Pharyngitis streptococcal [Not Recovered/Not Resolved]
  - Ocular hyperaemia [Unknown]
  - Fungal infection [Unknown]
  - Crohn^s disease [Unknown]
  - Nasal ulcer [Unknown]

NARRATIVE: CASE EVENT DATE: 2020
